FAERS Safety Report 17760136 (Version 3)
Quarter: 2021Q2

REPORT INFORMATION
  Report Type: Spontaneous
  Country: CA (occurrence: CA)
  Receive Date: 20200508
  Receipt Date: 20210624
  Transmission Date: 20210716
  Serious: Yes (Other)
  Sender: FDA-Public Use
  Company Number: CA-PFIZER INC-2020184517

PATIENT
  Age: 62 Year
  Sex: Female

DRUGS (2)
  1. PLAQUENIL [Concomitant]
     Active Substance: HYDROXYCHLOROQUINE SULFATE
     Dosage: UNK
  2. SULFASALAZINE. [Suspect]
     Active Substance: SULFASALAZINE
     Indication: RHEUMATOID ARTHRITIS
     Dosage: UNK

REACTIONS (10)
  - Fatigue [Not Recovered/Not Resolved]
  - Nodule [Unknown]
  - Nasopharyngitis [Unknown]
  - Asthenia [Unknown]
  - Oral infection [Unknown]
  - Pain [Unknown]
  - Drug ineffective [Unknown]
  - Mouth ulceration [Unknown]
  - COVID-19 [Unknown]
  - Oropharyngeal pain [Not Recovered/Not Resolved]
